FAERS Safety Report 19550162 (Version 1)
Quarter: 2021Q3

REPORT INFORMATION
  Report Type: Spontaneous
  Country: US (occurrence: US)
  Receive Date: 20210715
  Receipt Date: 20210715
  Transmission Date: 20211014
  Serious: Yes (Disabling)
  Sender: FDA-Public Use
  Company Number: None

PATIENT
  Age: 35 Year
  Sex: Female
  Weight: 60.78 kg

DRUGS (1)
  1. NP THYROID [Suspect]
     Active Substance: LEVOTHYROXINE\LIOTHYRONINE
     Indication: HYPOTHYROIDISM
     Dosage: ?          QUANTITY:1 DF DOSAGE FORM;?
     Route: 048
     Dates: start: 20180606, end: 20201115

REACTIONS (6)
  - Product substitution issue [None]
  - Feeling abnormal [None]
  - Dry skin [None]
  - Fatigue [None]
  - Drug ineffective [None]
  - Depression [None]

NARRATIVE: CASE EVENT DATE: 20201110
